FAERS Safety Report 8162711-4 (Version None)
Quarter: 2012Q1

REPORT INFORMATION
  Report Type: 
  Country: None (occurrence: None)
  Receive Date: 20120224
  Receipt Date: 20120213
  Transmission Date: 20120608
  Serious: No
  Sender: FDA-Public Use
  Company Number: US-ELI_LILLY_AND_COMPANY-US201107008103

PATIENT
  Sex: Female
  Weight: 65 kg

DRUGS (18)
  1. PHAZYME [Concomitant]
     Dosage: 18 MG, UNK
  2. VITAMIN D [Concomitant]
     Dosage: 1000 IU, BID
  3. FLUTICASONE PROPIONATE [Concomitant]
     Dosage: 50 MG, UNK
  4. OXYCODONE AND ACETAMINOPHEN [Concomitant]
     Indication: PAIN
     Dosage: 5 MG, PRN
  5. CALCIUM [Concomitant]
     Dosage: 600 MG, QD
  6. FORTEO [Suspect]
     Indication: OSTEOPOROSIS
     Dosage: 20 UG, QD
     Route: 058
     Dates: start: 20110716
  7. MULTI-VITAMIN [Concomitant]
  8. FORTEO [Suspect]
     Dosage: 20 UG, QOD
     Route: 058
  9. FORTEO [Suspect]
     Dosage: 20 UG, QD
     Route: 058
  10. FORTEO [Suspect]
     Dosage: 20 UG, QD
     Route: 058
  11. ANTIBIOTICS [Concomitant]
  12. BENAZEPRIL HYDROCHLORIDE [Concomitant]
     Dosage: 10 MG, UNK
  13. FORTEO [Suspect]
     Dosage: 20 UG, QOD
     Route: 058
  14. ASPIRIN [Concomitant]
     Dosage: UNK, BID
  15. FORTEO [Suspect]
     Dosage: 20 UG, QD
     Route: 058
  16. PANTOPRAZOLE [Concomitant]
     Dosage: 40 MG, UNK
  17. ATORVASTATIN [Concomitant]
     Dosage: 20 MG, UNK
  18. FEXOFENADINE [Concomitant]
     Dosage: 180 MG, UNK

REACTIONS (6)
  - DIZZINESS [None]
  - INAPPROPRIATE SCHEDULE OF DRUG ADMINISTRATION [None]
  - DECREASED APPETITE [None]
  - HEART RATE INCREASED [None]
  - PALPITATIONS [None]
  - INJECTION SITE ERYTHEMA [None]
